FAERS Safety Report 9440136 (Version 2)
Quarter: 2013Q3

REPORT INFORMATION
  Report Type: Spontaneous
  Country: JP (occurrence: JP)
  Receive Date: 20130805
  Receipt Date: 20130819
  Transmission Date: 20140515
  Serious: Yes (Other)
  Sender: FDA-Public Use
  Company Number: JP-PFIZER INC-2013225731

PATIENT
  Age: 13 Year
  Sex: 0

DRUGS (1)
  1. JZOLOFT [Suspect]
     Dosage: UNK

REACTIONS (2)
  - Glomerulonephritis membranous [Unknown]
  - Protein urine [Unknown]
